FAERS Safety Report 22630765 (Version 1)
Quarter: 2023Q2

REPORT INFORMATION
  Report Type: Spontaneous
  Country: US (occurrence: None)
  Receive Date: 20230620
  Receipt Date: 20230620
  Transmission Date: 20230722
  Serious: Yes (Other)
  Sender: FDA-Public Use
  Company Number: None

PATIENT
  Age: 44 Year
  Sex: Female

DRUGS (16)
  1. EMGALITY [Suspect]
     Active Substance: GALCANEZUMAB-GNLM
  2. FLUOXETINE [Concomitant]
     Active Substance: FLUOXETINE HYDROCHLORIDE
  3. PANTOPRAZOLE [Concomitant]
     Active Substance: PANTOPRAZOLE
  4. METAXALONE [Concomitant]
     Active Substance: METAXALONE
  5. TORAMATE [Concomitant]
  6. QUETIAPINE [Concomitant]
     Active Substance: QUETIAPINE
  7. GABAPENTIN [Concomitant]
     Active Substance: GABAPENTIN
  8. OXYCODONE [Concomitant]
     Active Substance: OXYCODONE
  9. DIAZEPAM [Concomitant]
     Active Substance: DIAZEPAM
  10. ONDANSETRON [Concomitant]
     Active Substance: ONDANSETRON
  11. NURTEC ODT [Concomitant]
     Active Substance: RIMEGEPANT SULFATE
  12. MONTELUKAST [Concomitant]
     Active Substance: MONTELUKAST SODIUM
  13. METHYLPHENIDATE [Concomitant]
     Active Substance: METHYLPHENIDATE
  14. JAMIESS [Concomitant]
  15. VITAMINS [Concomitant]
     Active Substance: VITAMINS
  16. VITAMIN B12 [Concomitant]
     Active Substance: CYANOCOBALAMIN

REACTIONS (9)
  - Injection site urticaria [None]
  - Injection site swelling [None]
  - Injection site erythema [None]
  - Injection site pruritus [None]
  - Nausea [None]
  - Dyspnoea [None]
  - Diarrhoea [None]
  - Abdominal pain [None]
  - Malaise [None]

NARRATIVE: CASE EVENT DATE: 20230619
